FAERS Safety Report 9346995 (Version 1)
Quarter: 2013Q2

REPORT INFORMATION
  Report Type: Spontaneous
  Country: IE (occurrence: IE)
  Receive Date: 20130613
  Receipt Date: 20130613
  Transmission Date: 20140414
  Serious: Yes (Other)
  Sender: FDA-Public Use
  Company Number: PHFR2013IE001906

PATIENT
  Age: 65 Year
  Sex: Male

DRUGS (7)
  1. CLOZARIL [Suspect]
     Indication: SCHIZOPHRENIA
     Dosage: UNK
     Route: 048
     Dates: start: 20031002, end: 20130320
  2. LORAZEPAM [Suspect]
     Dosage: UNK
     Route: 048
  3. ATENOLOL [Concomitant]
     Dosage: 25 MG, UNK
     Route: 048
  4. ESOMEPRAZOLE [Concomitant]
     Dosage: 20 MG, (MANE)
     Route: 048
  5. ZOLPIDEM [Concomitant]
     Dosage: 10 MG, UNK (MAX)
     Route: 048
  6. AMLODIPINE [Concomitant]
     Dosage: 5 MG, (MANE)
     Route: 048
  7. PHOSPHATE-SANDOZ [Concomitant]
     Dosage: UNK UKN, (MANE)

REACTIONS (6)
  - Neuroleptic malignant syndrome [Recovered/Resolved]
  - Confusional state [Recovered/Resolved]
  - C-reactive protein increased [Unknown]
  - Blood creatine phosphokinase increased [Unknown]
  - White blood cell count increased [Not Recovered/Not Resolved]
  - Neutrophil count increased [Recovered/Resolved]
